FAERS Safety Report 16167665 (Version 2)
Quarter: 2019Q2

REPORT INFORMATION
  Report Type: Report from Study
  Country: IT (occurrence: IT)
  Receive Date: 20190408
  Receipt Date: 20190627
  Transmission Date: 20190711
  Serious: Yes (Other)
  Sender: FDA-Public Use
  Company Number: IT-ACCORD-119229

PATIENT
  Age: 80 Year
  Sex: Male

DRUGS (4)
  1. DILTIAZEM. [Suspect]
     Active Substance: DILTIAZEM
     Dosage: 1 DF, UNK (TOTAL)
     Route: 048
     Dates: start: 20180715, end: 20180715
  2. HYDROXYCHLOROQUINE [Suspect]
     Active Substance: HYDROXYCHLOROQUINE
     Dosage: 1 DF, UNK (TOTAL)
     Route: 048
     Dates: start: 20180715, end: 20180715
  3. HYDROCHLOROTHIAZIDE. [Suspect]
     Active Substance: HYDROCHLOROTHIAZIDE
     Dosage: 1 DF, UNK (TOTAL)
     Route: 048
     Dates: start: 20180715, end: 20180715
  4. LISINOPRIL. [Suspect]
     Active Substance: LISINOPRIL
     Dosage: 1 DF, UNK (TOTAL)
     Route: 048
     Dates: start: 20180715, end: 20180715

REACTIONS (3)
  - Hypotension [Recovered/Resolved]
  - Anuria [Recovered/Resolved]
  - Medication error [Unknown]

NARRATIVE: CASE EVENT DATE: 20180715
